FAERS Safety Report 25644546 (Version 1)
Quarter: 2025Q3

REPORT INFORMATION
  Report Type: Spontaneous
  Country: JP (occurrence: JP)
  Receive Date: 20250805
  Receipt Date: 20250805
  Transmission Date: 20251020
  Serious: Yes (Other)
  Sender: BIOLOGICAL E. LIMITED
  Company Number: JP-BELUSA-2025BELLIT0037

PATIENT

DRUGS (1)
  1. DAPTOMYCIN [Suspect]
     Active Substance: DAPTOMYCIN
     Indication: Staphylococcal bacteraemia
     Dosage: 11.0 X1 DOSE/KG PER DAY, G/KG PER DAY
     Route: 065

REACTIONS (1)
  - Hepatic failure [Unknown]
